FAERS Safety Report 21824390 (Version 1)
Quarter: 2023Q1

REPORT INFORMATION
  Report Type: Spontaneous
  Country: CA (occurrence: CA)
  Receive Date: 20230105
  Receipt Date: 20230105
  Transmission Date: 20230418
  Serious: Yes (Other)
  Sender: FDA-Public Use
  Company Number: CA-PFIZER INC-202300003636

PATIENT
  Age: 67 Year
  Sex: Male

DRUGS (1)
  1. XELJANZ [Suspect]
     Active Substance: TOFACITINIB CITRATE
     Indication: Colitis ulcerative
     Dosage: 10MG 2X/DAY, INDUCTION 10MG TWICE DAILYMAINTENANCE 5MG TWICE DAILY(DISCONTINUED )
     Route: 048
     Dates: start: 20221001, end: 2022

REACTIONS (2)
  - Abdominal operation [Unknown]
  - Colostomy [Unknown]

NARRATIVE: CASE EVENT DATE: 20220101
